FAERS Safety Report 24324048 (Version 1)
Quarter: 2024Q3

REPORT INFORMATION
  Report Type: Spontaneous
  Country: FR (occurrence: FR)
  Receive Date: 20240916
  Receipt Date: 20240916
  Transmission Date: 20241016
  Serious: Yes (Hospitalization)
  Sender: FRESENIUS KABI
  Company Number: None

PATIENT
  Age: 44 Year
  Sex: Female

DRUGS (3)
  1. PACLITAXEL [Suspect]
     Active Substance: PACLITAXEL
     Indication: Breast cancer
     Dosage: C1
     Route: 042
     Dates: start: 20240816, end: 20240816
  2. HERCEPTIN [Suspect]
     Active Substance: TRASTUZUMAB
     Indication: Breast cancer
     Dosage: C1
     Route: 058
     Dates: start: 20240816, end: 20240816
  3. MINOCYCLINE BIOGARAN 100 mg, scored film-coated tablet [Concomitant]
     Indication: Arthritis infective
     Dosage: 100 MG X 2
     Route: 048
     Dates: start: 20240326

REACTIONS (1)
  - Symmetrical drug-related intertriginous and flexural exanthema [Recovered/Resolved]

NARRATIVE: CASE EVENT DATE: 20240817
